FAERS Safety Report 14892456 (Version 1)
Quarter: 2018Q2

REPORT INFORMATION
  Report Type: Spontaneous
  Country: IL (occurrence: IL)
  Receive Date: 20180514
  Receipt Date: 20180514
  Transmission Date: 20180711
  Serious: Yes (Other)
  Sender: FDA-Public Use
  Company Number: IL-BAUSCH-SYM-2013-09161

PATIENT
  Age: 24 Year
  Sex: Female

DRUGS (2)
  1. VERTEPORFIN [Suspect]
     Active Substance: VERTEPORFIN
     Indication: CHOROIDAL NEOVASCULARISATION
     Route: 065
  2. AVASTIN [Concomitant]
     Active Substance: BEVACIZUMAB
     Indication: PRODUCT USED FOR UNKNOWN INDICATION
     Dosage: INTRAVITREAL INJECTION
     Route: 065

REACTIONS (4)
  - Maternal exposure during pregnancy [Recovered/Resolved]
  - Visual acuity reduced [Recovered/Resolved]
  - Normal newborn [Recovered/Resolved]
  - Choroidal neovascularisation [Recovered/Resolved]
